FAERS Safety Report 5780569-5 (Version None)
Quarter: 2008Q2

REPORT INFORMATION
  Report Type: 
  Country: None (occurrence: None)
  Receive Date: 20080620
  Receipt Date: 20080609
  Transmission Date: 20081010
  Serious: Yes (Life-Threatening, Hospitalization, Disabling, Other)
  Sender: FDA-Public Use
  Company Number: US-BAYER-200812413BCC

PATIENT
  Age: 88 Year
  Sex: Female
  Weight: 27 kg

DRUGS (3)
  1. ASPIRIN [Suspect]
     Indication: DRUG USE FOR UNKNOWN INDICATION
     Route: 048
     Dates: start: 20050101, end: 20080410
  2. PLAVIX [Suspect]
     Indication: MUSCULAR WEAKNESS
     Route: 048
     Dates: start: 20080406, end: 20080408
  3. LORAZEPAM [Concomitant]
     Indication: DRUG USE FOR UNKNOWN INDICATION
     Route: 048
     Dates: start: 19980101

REACTIONS (9)
  - CEREBRAL HAEMORRHAGE [None]
  - EAR PAIN [None]
  - HEADACHE [None]
  - INSOMNIA [None]
  - MOBILITY DECREASED [None]
  - MUSCULOSKELETAL PAIN [None]
  - MUSCULOSKELETAL STIFFNESS [None]
  - THROMBOSIS [None]
  - TOOTHACHE [None]
